FAERS Safety Report 6569962-0 (Version None)
Quarter: 2010Q1

REPORT INFORMATION
  Report Type: 
  Country: None (occurrence: None)
  Receive Date: 20100202
  Receipt Date: 20100202
  Transmission Date: 20100710
  Serious: Yes (Other)
  Sender: FDA-Public Use
  Company Number: None

PATIENT
  Age: 52 Year
  Sex: Female
  Weight: 53.0709 kg

DRUGS (2)
  1. TYSABI BIOGEN IDEC [Suspect]
     Indication: MULTIPLE SCLEROSIS
     Dosage: ONCE EVERY 4 WEEKS IV DRIP
     Route: 041
     Dates: start: 20070608, end: 20090810
  2. BETASERON [Suspect]
     Indication: MULTIPLE SCLEROSIS
     Dosage: 1 ML EVERY OTHER DAY SQ
     Route: 058
     Dates: start: 20091105, end: 20100124

REACTIONS (2)
  - HERPES ZOSTER [None]
  - INFECTION IN AN IMMUNOCOMPROMISED HOST [None]
